FAERS Safety Report 6996447-X (Version None)
Quarter: 2010Q3

REPORT INFORMATION
  Report Type: 
  Country: None (occurrence: None)
  Receive Date: 20100918
  Receipt Date: 20090310
  Transmission Date: 20110219
  Serious: No
  Sender: FDA-Public Use
  Company Number: US-WYE-H08531809

PATIENT
  Age: 45 Year
  Sex: Female

DRUGS (4)
  1. EFFEXOR XR [Suspect]
     Indication: DEPRESSION
     Dosage: 150 MG (FREQUENCY UNSPECIFIED)
     Route: 048
     Dates: start: 20070101, end: 20090201
  2. EFFEXOR XR [Suspect]
     Indication: ANXIETY
     Dosage: TAPERED DOSE
     Route: 048
     Dates: start: 20090201, end: 20090301
  3. CONJUGATED ESTROGENS [Concomitant]
  4. XANAX [Concomitant]

REACTIONS (16)
  - ABNORMAL DREAMS [None]
  - AGGRESSION [None]
  - ANXIETY [None]
  - BALANCE DISORDER [None]
  - CONDITION AGGRAVATED [None]
  - CRYING [None]
  - DIZZINESS [None]
  - DRUG EFFECT DECREASED [None]
  - DRUG WITHDRAWAL SYNDROME [None]
  - FATIGUE [None]
  - FEELING COLD [None]
  - IRRITABILITY [None]
  - MEMORY IMPAIRMENT [None]
  - PARAESTHESIA [None]
  - RESTLESSNESS [None]
  - TREMOR [None]
